FAERS Safety Report 15600166 (Version 2)
Quarter: 2019Q3

REPORT INFORMATION
  Report Type: Spontaneous
  Country: US (occurrence: US)
  Receive Date: 20181109
  Receipt Date: 20190730
  Transmission Date: 20191004
  Serious: No
  Sender: FDA-Public Use
  Company Number: US-BIOGEN-2018BI00654329

PATIENT
  Sex: Female

DRUGS (1)
  1. TYSABRI [Suspect]
     Active Substance: NATALIZUMAB
     Indication: MULTIPLE SCLEROSIS
     Route: 050
     Dates: start: 20080318, end: 20180628

REACTIONS (7)
  - Therapeutic product effect decreased [Unknown]
  - Joint injury [Unknown]
  - Depression [Unknown]
  - Multiple sclerosis relapse [Unknown]
  - Progressive multiple sclerosis [Unknown]
  - Lower limb fracture [Not Recovered/Not Resolved]
  - Buttock injury [Unknown]
